FAERS Safety Report 4305746-1 (Version None)
Quarter: 2004Q1

REPORT INFORMATION
  Report Type: 
  Country: None (occurrence: None)
  Receive Date: 20040225
  Receipt Date: 20040209
  Transmission Date: 20041129
  Serious: Yes (Life-Threatening)
  Sender: FDA-Public Use
  Company Number: 2004-ES-00031ES

PATIENT
  Age: 74 Year
  Sex: Female

DRUGS (1)
  1. MOVALIS           (MELOXICAM [Suspect]
     Indication: ENTHESOPATHY
     Dosage: 15 MG (15 MG); PO
     Route: 048
     Dates: start: 20030115, end: 20030205

REACTIONS (3)
  - ANAEMIA [None]
  - GASTRIC ULCER [None]
  - GASTROINTESTINAL HAEMORRHAGE [None]
